FAERS Safety Report 8033877-1 (Version None)
Quarter: 2011Q4

REPORT INFORMATION
  Report Type: 
  Country: None (occurrence: None)
  Receive Date: 20111228
  Receipt Date: 20111219
  Transmission Date: 20120403
  Serious: Yes (Hospitalization)
  Sender: FDA-Public Use
  Company Number: 2011SP059397

PATIENT
  Age: 32 Year
  Sex: Female
  Weight: 64.8644 kg

DRUGS (1)
  1. IMPLANON [Suspect]
     Indication: CONTRACEPTION
     Dosage: 1 DF; ;SBDE
     Dates: start: 20110705, end: 20111215

REACTIONS (2)
  - DEPRESSION [None]
  - SUICIDE ATTEMPT [None]
